FAERS Safety Report 17430264 (Version 2)
Quarter: 2020Q2

REPORT INFORMATION
  Report Type: Spontaneous
  Country: US (occurrence: US)
  Receive Date: 20200218
  Receipt Date: 20200629
  Transmission Date: 20200713
  Serious: No
  Sender: FDA-Public Use
  Company Number: US-PFIZER INC-2020070171

PATIENT
  Age: 67 Year
  Sex: Male
  Weight: 77.11 kg

DRUGS (4)
  1. SILDENAFIL CITRATE. [Suspect]
     Active Substance: SILDENAFIL CITRATE
     Dosage: UNK UNK, DAILY (100 MG UP TO 300 MG A DAY)
     Dates: start: 2019, end: 202006
  2. TRIMIX (ALPROSTADIL\PAPAVERINE\PHENTOLAMINE) [Concomitant]
     Active Substance: ALPROSTADIL\PAPAVERINE\PHENTOLAMINE
     Indication: ERECTILE DYSFUNCTION
     Dosage: UNK (ENCLOSED DOSAGE WAS 0.2 ML TO 0.4 ML)
     Dates: start: 2017
  3. SILDENAFIL CITRATE. [Suspect]
     Active Substance: SILDENAFIL CITRATE
     Indication: ERECTILE DYSFUNCTION
     Dosage: 400 MG, UNK, (400MG AT ONE TIME)
  4. QUADMIX [Concomitant]
     Indication: ERECTILE DYSFUNCTION
     Dosage: UNK (ENCLOSED DOSAGE WAS 0.2 ML TO 0.4 ML)
     Dates: start: 2017

REACTIONS (2)
  - Drug ineffective [Not Recovered/Not Resolved]
  - Intentional overdose [Unknown]

NARRATIVE: CASE EVENT DATE: 2017
